FAERS Safety Report 7364074-0 (Version None)
Quarter: 2011Q1

REPORT INFORMATION
  Report Type: 
  Country: None (occurrence: None)
  Receive Date: 20110321
  Receipt Date: 20110315
  Transmission Date: 20110831
  Serious: Yes (Other)
  Sender: FDA-Public Use
  Company Number: US-PFIZER INC-2011056518

PATIENT
  Age: 60 Year
  Sex: Female

DRUGS (3)
  1. BORTEZOMIB [Suspect]
     Indication: ANAEMIA HAEMOLYTIC AUTOIMMUNE
     Dosage: 1.3 MG/M2, DAYS 1,4, AND 8
  2. CYCLOPHOSPHAMIDE [Suspect]
     Indication: ANAEMIA HAEMOLYTIC AUTOIMMUNE
     Dosage: 500 MG/M2, DAYS 1 AND 4
  3. DEXAMETHASONE SODIUM PHOSPHATE [Suspect]
     Indication: ANAEMIA HAEMOLYTIC AUTOIMMUNE
     Dosage: 20 MG, DAYS 1, 4, AND 8

REACTIONS (2)
  - THROMBOCYTOPENIA [None]
  - NEUTROPENIA [None]
